FAERS Safety Report 21202860 (Version 1)
Quarter: 2022Q3

REPORT INFORMATION
  Report Type: Spontaneous
  Country: US (occurrence: US)
  Receive Date: 20220811
  Receipt Date: 20220811
  Transmission Date: 20221027
  Serious: Yes (Other)
  Sender: FDA-Public Use
  Company Number: US-OTSUKA-2022_026395

PATIENT
  Sex: Female
  Weight: 90.7 kg

DRUGS (1)
  1. REXULTI [Suspect]
     Active Substance: BREXPIPRAZOLE
     Indication: Major depression
     Dosage: 2 MG
     Route: 048
     Dates: start: 2017, end: 20200211

REACTIONS (2)
  - Diabetes mellitus [Not Recovered/Not Resolved]
  - Weight increased [Unknown]
